FAERS Safety Report 15554499 (Version 3)
Quarter: 2018Q4

REPORT INFORMATION
  Report Type: Spontaneous
  Country: CH (occurrence: CH)
  Receive Date: 20181026
  Receipt Date: 20181112
  Transmission Date: 20190205
  Serious: Yes (Other)
  Sender: FDA-Public Use
  Company Number: CH-ROCHE-2204650

PATIENT
  Sex: Male

DRUGS (4)
  1. MABTHERA [Suspect]
     Active Substance: RITUXIMAB
     Indication: HAIRY CELL LEUKAEMIA
     Route: 065
     Dates: start: 20170822, end: 20171107
  2. ZELBORAF [Suspect]
     Active Substance: VEMURAFENIB
     Indication: HAIRY CELL LEUKAEMIA
     Route: 048
     Dates: start: 201711
  3. NIPENT [Concomitant]
     Active Substance: PENTOSTATIN
     Indication: HAIRY CELL LEUKAEMIA
     Route: 065
     Dates: start: 20170822, end: 20171107
  4. ROFERON-A [Suspect]
     Active Substance: INTERFERON ALFA-2A
     Indication: HAIRY CELL LEUKAEMIA
     Route: 065

REACTIONS (3)
  - Hairy cell leukaemia [Not Recovered/Not Resolved]
  - Intentional product use issue [Unknown]
  - Off label use [Unknown]
